FAERS Safety Report 24780293 (Version 1)
Quarter: 2024Q4

REPORT INFORMATION
  Report Type: Spontaneous
  Country: US (occurrence: US)
  Receive Date: 20241227
  Receipt Date: 20241227
  Transmission Date: 20250115
  Serious: Yes (Other)
  Sender: JOHNSON AND JOHNSON
  Company Number: US-JNJFOC-20241273689

PATIENT
  Sex: Female
  Weight: 96.3 kg

DRUGS (9)
  1. DARATUMUMAB [Suspect]
     Active Substance: DARATUMUMAB
     Indication: Plasma cell myeloma
     Route: 065
     Dates: start: 20240413
  2. DARATUMUMAB [Suspect]
     Active Substance: DARATUMUMAB
     Route: 065
     Dates: start: 20241117
  3. DARATUMUMAB [Suspect]
     Active Substance: DARATUMUMAB
     Dosage: MAINTENANCE
     Route: 065
     Dates: start: 20240920, end: 20241004
  4. DARATUMUMAB [Suspect]
     Active Substance: DARATUMUMAB
     Route: 065
     Dates: start: 20241018, end: 20241217
  5. REVLIMID [Suspect]
     Active Substance: LENALIDOMIDE
     Indication: Plasma cell myeloma
     Route: 065
     Dates: start: 20241018, end: 20241217
  6. REVLIMID [Suspect]
     Active Substance: LENALIDOMIDE
     Dosage: MAINTENANCE
     Route: 065
     Dates: start: 20240920, end: 20241004
  7. DEXAMETHASONE [Suspect]
     Active Substance: DEXAMETHASONE
     Indication: Plasma cell myeloma
     Dosage: MAINTENANCE
     Route: 065
     Dates: start: 20240920, end: 20241004
  8. DEXAMETHASONE [Suspect]
     Active Substance: DEXAMETHASONE
     Route: 065
     Dates: start: 20241018, end: 20241217
  9. DEXAMETHASONE [Suspect]
     Active Substance: DEXAMETHASONE
     Route: 065
     Dates: start: 20240209, end: 20240331

REACTIONS (1)
  - Plasmacytoma [Unknown]
